FAERS Safety Report 6990570-1 (Version None)
Quarter: 2010Q3

REPORT INFORMATION
  Report Type: 
  Country: None (occurrence: None)
  Receive Date: 20100916
  Receipt Date: 20100715
  Transmission Date: 20110219
  Serious: Yes (Other)
  Sender: FDA-Public Use
  Company Number: MY-PFIZER INC-2010088908

PATIENT
  Age: 54 Year
  Sex: Female

DRUGS (3)
  1. LYRICA [Suspect]
     Indication: PAIN IN EXTREMITY
     Dosage: 75 MG, UNK
     Route: 048
  2. NEURONTIN [Concomitant]
     Dosage: UNK
  3. ULTRACET [Concomitant]
     Dosage: UNK

REACTIONS (4)
  - MUSCULOSKELETAL STIFFNESS [None]
  - NAUSEA [None]
  - TREMOR [None]
  - VOMITING [None]
